FAERS Safety Report 24579256 (Version 2)
Quarter: 2024Q4

REPORT INFORMATION
  Report Type: Spontaneous
  Country: BG (occurrence: BG)
  Receive Date: 20241105
  Receipt Date: 20241118
  Transmission Date: 20250115
  Serious: Yes (Hospitalization, Other)
  Sender: MACLEODS
  Company Number: BG-MACLEODS PHARMA-MAC2024049843

PATIENT

DRUGS (2)
  1. VALSARTAN [Suspect]
     Active Substance: VALSARTAN
     Indication: Hypertension
     Dosage: VALASCORE, 160 MG, GIVEN ORALLY AS A SINGLE TABLET IN THE EVENING
     Route: 048
  2. AMLODIPINE [Concomitant]
     Active Substance: AMLODIPINE BESYLATE
     Indication: Hypertension
     Dosage: IN THE MORNING
     Route: 065

REACTIONS (1)
  - Erythema nodosum [Recovering/Resolving]
